FAERS Safety Report 9201249 (Version 3)
Quarter: 2013Q4

REPORT INFORMATION
  Report Type: Report from Study
  Country: BR (occurrence: BR)
  Receive Date: 20130401
  Receipt Date: 20131111
  Transmission Date: 20140711
  Serious: Yes (Other)
  Sender: FDA-Public Use
  Company Number: PHHY2013BR030742

PATIENT
  Sex: Male
  Weight: 80 kg

DRUGS (1)
  1. FORASEQ [Suspect]
     Indication: CHRONIC OBSTRUCTIVE PULMONARY DISEASE
     Dosage: UNK

REACTIONS (4)
  - Aortic aneurysm [Unknown]
  - Cardiac disorder [Unknown]
  - Arrhythmia [Unknown]
  - Dyspnoea [Unknown]
